FAERS Safety Report 8780591 (Version 2)
Quarter: 2012Q4

REPORT INFORMATION
  Report Type: 
  Country: ES (occurrence: ES)
  Receive Date: 20120913
  Receipt Date: 20121017
  Transmission Date: 20130627
  Serious: Yes (Hospitalization, Other)
  Sender: FDA-Public Use
  Company Number: PHHY2012ES078638

PATIENT
  Age: 80 Year
  Sex: Female

DRUGS (1)
  1. TASIGNA [Suspect]
     Indication: CHRONIC MYELOID LEUKAEMIA
     Dosage: 300 mg, Q12H
     Route: 048

REACTIONS (6)
  - Blindness [Recovered/Resolved with Sequelae]
  - Diabetic retinopathy [Recovered/Resolved with Sequelae]
  - Diabetic complication [Recovered/Resolved with Sequelae]
  - Concomitant disease progression [Unknown]
  - Peripheral arterial occlusive disease [Recovered/Resolved with Sequelae]
  - Skin lesion [Recovered/Resolved with Sequelae]
